FAERS Safety Report 10206659 (Version 2)
Quarter: 2014Q2

REPORT INFORMATION
  Report Type: Spontaneous
  Country: US (occurrence: US)
  Receive Date: 20140530
  Receipt Date: 20140617
  Transmission Date: 20141212
  Serious: Yes (Hospitalization)
  Sender: FDA-Public Use
  Company Number: 2014SP001638

PATIENT
  Age: 31 Year
  Sex: Male
  Weight: 121 kg

DRUGS (3)
  1. LATUDA [Suspect]
     Indication: SCHIZOPHRENIA
     Route: 048
     Dates: start: 20130923, end: 20131022
  2. RISPERDAL [Concomitant]
     Indication: SCHIZOPHRENIA
  3. RISPERDAL [Concomitant]
     Indication: SCHIZOPHRENIA

REACTIONS (1)
  - Diabetic ketoacidosis [Recovered/Resolved]
